FAERS Safety Report 15626570 (Version 1)
Quarter: 2018Q4

REPORT INFORMATION
  Report Type: Spontaneous
  Country: US (occurrence: US)
  Receive Date: 20181112
  Receipt Date: 20181112
  Transmission Date: 20190205
  Serious: No
  Sender: FDA-Public Use
  Company Number: None

PATIENT
  Age: 41 Year
  Sex: Female

DRUGS (4)
  1. MAVYRET [Suspect]
     Active Substance: GLECAPREVIR\PIBRENTASVIR
     Route: 047
     Dates: start: 20180925
  2. ABILIFY [Concomitant]
     Active Substance: ARIPIPRAZOLE
  3. KLONOPIN [Concomitant]
     Active Substance: CLONAZEPAM
  4. ZOLOFT [Concomitant]
     Active Substance: SERTRALINE HYDROCHLORIDE

REACTIONS (2)
  - Headache [None]
  - Migraine [None]

NARRATIVE: CASE EVENT DATE: 20181001
